FAERS Safety Report 6682793-6 (Version None)
Quarter: 2010Q2

REPORT INFORMATION
  Report Type: 
  Country: None (occurrence: None)
  Receive Date: 20100415
  Receipt Date: 20100406
  Transmission Date: 20101027
  Serious: Yes (Other)
  Sender: FDA-Public Use
  Company Number: US-ROCHE-695691

PATIENT
  Sex: Male

DRUGS (6)
  1. PEGASYS [Suspect]
     Indication: HEPATITIS C
     Dosage: 1 DOSE AT 120 MCG, CONTINUE AT 180 MCG WEEKLY
     Route: 065
     Dates: start: 20080502, end: 20090110
  2. COPEGUS [Suspect]
     Indication: HEPATITIS C
     Route: 048
     Dates: start: 20080502, end: 20090110
  3. ENSURE LIQUID [Concomitant]
     Route: 048
  4. LOPRESSOR [Concomitant]
     Route: 048
  5. NAPHCON-A [Concomitant]
     Dosage: DOSE: 0.025-0.3%
  6. NORVASC [Concomitant]
     Route: 048

REACTIONS (3)
  - POST-TRAUMATIC STRESS DISORDER [None]
  - PRURITUS GENERALISED [None]
  - SKIN HYPOPIGMENTATION [None]
